FAERS Safety Report 4847014-5 (Version None)
Quarter: 2005Q4

REPORT INFORMATION
  Report Type: 
  Country: None (occurrence: None)
  Receive Date: 20051207
  Receipt Date: 20051129
  Transmission Date: 20060501
  Serious: Yes (Other)
  Sender: FDA-Public Use
  Company Number: US-JNJFOC-20051100694

PATIENT
  Sex: Female
  Weight: 81.65 kg

DRUGS (4)
  1. RISPERDAL [Suspect]
     Indication: PARANOIA
     Route: 048
  2. RISPERDAL [Suspect]
     Route: 048
  3. LAMICTAL [Concomitant]
     Indication: BIPOLAR DISORDER
     Dosage: (AT BEDTIME)
  4. DEPAKOTE ER [Concomitant]
     Indication: BIPOLAR DISORDER
     Dosage: 500 MG DOSE (3 DOSES TAKEN AT BEDTIME)

REACTIONS (3)
  - BLOOD PROLACTIN INCREASED [None]
  - GALACTORRHOEA [None]
  - PROLACTINOMA [None]
